FAERS Safety Report 25150207 (Version 1)
Quarter: 2025Q2

REPORT INFORMATION
  Report Type: Spontaneous
  Country: AU (occurrence: AU)
  Receive Date: 20250402
  Receipt Date: 20250402
  Transmission Date: 20250717
  Serious: Yes (Hospitalization, Other)
  Sender: PFIZER
  Company Number: AU-PFIZER INC-PV202400094020

PATIENT
  Age: 57 Year
  Sex: Female

DRUGS (7)
  1. VFEND [Suspect]
     Active Substance: VORICONAZOLE
     Indication: Antifungal treatment
     Dosage: 6 MG/KG, 2X/DAY FOR 24 HOURS
  2. VFEND [Suspect]
     Active Substance: VORICONAZOLE
     Indication: Aspergillus infection
     Dosage: 4 MG/KG, 2X/DAY MAINTENANCE
  3. VFEND [Suspect]
     Active Substance: VORICONAZOLE
  4. VFEND [Suspect]
     Active Substance: VORICONAZOLE
     Indication: Antifungal treatment
     Route: 048
  5. VFEND [Suspect]
     Active Substance: VORICONAZOLE
     Indication: Endophthalmitis
  6. VFEND [Suspect]
     Active Substance: VORICONAZOLE
     Indication: Aspergillus infection
  7. ANIDULAFUNGIN [Suspect]
     Active Substance: ANIDULAFUNGIN
     Indication: Antifungal treatment

REACTIONS (9)
  - Periostitis [Unknown]
  - Retinal haemorrhage [Unknown]
  - Eye disorder [Recovering/Resolving]
  - Visual impairment [Recovering/Resolving]
  - Vitreous floaters [Recovering/Resolving]
  - Retinal disorder [Unknown]
  - Confusional state [Unknown]
  - Central nervous system lesion [Recovering/Resolving]
  - Off label use [Unknown]
